FAERS Safety Report 4536516-7 (Version None)
Quarter: 2004Q4

REPORT INFORMATION
  Report Type: 
  Country: None (occurrence: None)
  Receive Date: 20041223
  Receipt Date: 20041215
  Transmission Date: 20050328
  Serious: Yes (Hospitalization)
  Sender: FDA-Public Use
  Company Number: US-JNJFOC-20041205077

PATIENT
  Sex: Female

DRUGS (13)
  1. INFLIXIMAB [Suspect]
     Indication: RHEUMATOID ARTHRITIS
     Route: 042
  2. ASPIRIN [Concomitant]
  3. CALTRATE [Concomitant]
  4. DARVOCET-N 100 [Concomitant]
  5. DARVOCET-N 100 [Concomitant]
  6. FOLIC ACID [Concomitant]
  7. METHOTREXATE [Concomitant]
  8. NAPROSYN [Concomitant]
  9. OCUVITE [Concomitant]
  10. OCUVITE [Concomitant]
  11. OCUVITE [Concomitant]
  12. PREDNISONE [Concomitant]
  13. ACIPHEX [Concomitant]

REACTIONS (4)
  - CORONARY ARTERY DISEASE [None]
  - CORONARY ARTERY STENOSIS [None]
  - HAEMATOCRIT DECREASED [None]
  - VENTRICULAR DYSKINESIA [None]
